FAERS Safety Report 14004654 (Version 1)
Quarter: 2017Q3

REPORT INFORMATION
  Report Type: Spontaneous
  Country: US (occurrence: US)
  Receive Date: 20170922
  Receipt Date: 20170922
  Transmission Date: 20171128
  Serious: Yes (Death)
  Sender: FDA-Public Use
  Company Number: US-JNJFOC-20170921125

PATIENT
  Age: 32 Year
  Sex: Female

DRUGS (1)
  1. FENTANYL. [Suspect]
     Active Substance: FENTANYL
     Indication: INTENTIONAL PRODUCT MISUSE
     Route: 048
     Dates: start: 20160926

REACTIONS (3)
  - Overdose [Fatal]
  - Intentional product misuse [Fatal]
  - Drug diversion [Fatal]

NARRATIVE: CASE EVENT DATE: 20160926
